FAERS Safety Report 8458700-2 (Version None)
Quarter: 2012Q2

REPORT INFORMATION
  Report Type: 
  Country: None (occurrence: None)
  Receive Date: 20120622
  Receipt Date: 20120618
  Transmission Date: 20120825
  Serious: Yes (Hospitalization, Congenital Anomaly, Other)
  Sender: FDA-Public Use
  Company Number: US-PFIZER INC-2011235573

PATIENT
  Sex: Male
  Weight: 3 kg

DRUGS (2)
  1. ZOLOFT [Suspect]
     Dosage: UNK
     Route: 064
  2. MULTI-VITAMINS [Concomitant]
     Dosage: UNK
     Route: 064

REACTIONS (25)
  - INTERRUPTION OF AORTIC ARCH [None]
  - AORTIC VALVE INCOMPETENCE [None]
  - CONGENITAL AORTIC VALVE INCOMPETENCE [None]
  - PULMONARY VASCULAR DISORDER [None]
  - MITRAL VALVE INCOMPETENCE [None]
  - PNEUMONIA ASPIRATION [None]
  - PNEUMOPERICARDIUM [None]
  - PIGMENTATION DISORDER [None]
  - PATENT DUCTUS ARTERIOSUS [None]
  - ATRIAL SEPTAL DEFECT [None]
  - RIGHT VENTRICULAR HYPERTROPHY [None]
  - TRUNCUS ARTERIOSUS PERSISTENT [None]
  - LARYNGOMALACIA [None]
  - PULMONARY ARTERY STENOSIS CONGENITAL [None]
  - PULMONARY VALVE INCOMPETENCE [None]
  - TRICUSPID VALVE INCOMPETENCE [None]
  - RIGHT VENTRICLE OUTFLOW TRACT OBSTRUCTION [None]
  - NEONATAL RESPIRATORY DISTRESS SYNDROME [None]
  - SEPSIS NEONATAL [None]
  - VOCAL CORD PARALYSIS [None]
  - DILATATION VENTRICULAR [None]
  - VENTRICULAR SEPTAL DEFECT [None]
  - CARDIOMEGALY [None]
  - MATERNAL EXPOSURE TIMING UNSPECIFIED [None]
  - RESPIRATORY TRACT MALFORMATION [None]
